FAERS Safety Report 4338176-7 (Version None)
Quarter: 2004Q2

REPORT INFORMATION
  Report Type: 
  Country: None (occurrence: None)
  Receive Date: 20040407
  Receipt Date: 20040322
  Transmission Date: 20050107
  Serious: Yes (Hospitalization)
  Sender: FDA-Public Use
  Company Number: 2004AP01863

PATIENT
  Age: 63 Year
  Sex: Female

DRUGS (26)
  1. IRESSA [Suspect]
     Indication: NON-SMALL CELL LUNG CANCER
     Dosage: 250 MG DAILY PO
     Route: 048
     Dates: start: 20040217, end: 20040322
  2. IRESSA [Suspect]
     Indication: SQUAMOUS CELL CARCINOMA
     Dosage: 250 MG DAILY PO
     Route: 048
     Dates: start: 20040217, end: 20040322
  3. ADONA [Concomitant]
  4. MUCODYNE [Concomitant]
  5. TRANSAMIN [Concomitant]
  6. THEO-DUR [Concomitant]
  7. 1% CODEINE PHOSPHATE [Concomitant]
  8. MAGLAX [Concomitant]
  9. HOKUNALIN [Concomitant]
  10. BROCIN [Concomitant]
  11. APRICOT KERNEL WATER [Concomitant]
  12. UREPEARL [Concomitant]
  13. OXYGEN [Concomitant]
  14. LOXONIN [Concomitant]
  15. ALOSENN [Concomitant]
  16. LORAZEPAM [Concomitant]
  17. GRAMALIL [Concomitant]
  18. RHYTHMY [Concomitant]
  19. NELBON [Concomitant]
  20. DEPAS [Concomitant]
  21. PAXIL [Concomitant]
  22. RISPERDAL [Concomitant]
  23. AZUPLA [Concomitant]
  24. GEMZAR [Concomitant]
  25. TAXOL [Concomitant]
  26. PARAPLATIN [Concomitant]

REACTIONS (4)
  - BACK PAIN [None]
  - DRY SKIN [None]
  - HAEMOPTYSIS [None]
  - PNEUMONIA [None]
